FAERS Safety Report 4278925-X (Version None)
Quarter: 2004Q1

REPORT INFORMATION
  Report Type: 
  Country: None (occurrence: None)
  Receive Date: 20040122
  Receipt Date: 20040113
  Transmission Date: 20041129
  Serious: Yes (Disabling)
  Sender: FDA-Public Use
  Company Number: HQ6246917JAN2003

PATIENT
  Age: 60 Year
  Sex: Female

DRUGS (2)
  1. DIMETAPP [Suspect]
     Indication: NASOPHARYNGITIS
     Dosage: ORAL
     Route: 048
  2. ALKA-SELTZER (ACETYLSALICYLIC ACID/CITRIC ACID/SODIUM BIVCARBONATE) [Suspect]
     Indication: NASOPHARYNGITIS

REACTIONS (4)
  - CEREBROVASCULAR ACCIDENT [None]
  - DIZZINESS [None]
  - HEADACHE [None]
  - HEMIPARESIS [None]
